FAERS Safety Report 12457269 (Version 5)
Quarter: 2017Q1

REPORT INFORMATION
  Report Type: Report from Study
  Country: US (occurrence: US)
  Receive Date: 20160610
  Receipt Date: 20170111
  Transmission Date: 20170428
  Serious: No
  Sender: FDA-Public Use
  Company Number: US-ALEXION-A201604180

PATIENT
  Sex: Female

DRUGS (1)
  1. SOLIRIS [Suspect]
     Active Substance: ECULIZUMAB
     Indication: HAEMOLYTIC URAEMIC SYNDROME
     Dosage: UNK, EVERY 4 WEEKS
     Route: 042

REACTIONS (5)
  - Depression [Unknown]
  - Exposure during pregnancy [Recovered/Resolved]
  - Abdominal pain [Unknown]
  - Headache [Unknown]
  - Vaginal haemorrhage [Unknown]
